FAERS Safety Report 4430799-X (Version None)
Quarter: 2004Q3

REPORT INFORMATION
  Report Type: 
  Country: None (occurrence: None)
  Receive Date: 20040823
  Receipt Date: 20040810
  Transmission Date: 20050211
  Serious: Yes (Other)
  Sender: FDA-Public Use
  Company Number: 200416036US

PATIENT
  Sex: Male

DRUGS (2)
  1. KETEK [Suspect]
     Indication: BRONCHITIS
     Dosage: DOSE: NOT PROVIDED
  2. ANTIDEPRESSANTS [Concomitant]
     Dosage: DOSE: NOT PROVIDED

REACTIONS (2)
  - HEART RATE DECREASED [None]
  - PALPITATIONS [None]
